FAERS Safety Report 13338736 (Version 1)
Quarter: 2017Q1

REPORT INFORMATION
  Report Type: Spontaneous
  Country: AU (occurrence: AU)
  Receive Date: 20170315
  Receipt Date: 20170315
  Transmission Date: 20170428
  Serious: Yes (Other)
  Sender: FDA-Public Use
  Company Number: AU-PFIZER INC-2017113078

PATIENT
  Age: 39 Year
  Sex: Female

DRUGS (4)
  1. ALPRAZOLAM. [Suspect]
     Active Substance: ALPRAZOLAM
     Dosage: UNK, DAILY (1-2 MG)
  2. DIAZEPAM. [Interacting]
     Active Substance: DIAZEPAM
     Dosage: UNK, DAILY (5-10 MG)
  3. TRANYLCYPROMINE [Interacting]
     Active Substance: TRANYLCYPROMINE
     Dosage: UNK, DAILY (BETWEEN 100 MG AND 130 MG)
  4. PIMOZIDE. [Interacting]
     Active Substance: PIMOZIDE
     Dosage: UNK, DAILY (1-2 MG)

REACTIONS (3)
  - Foetal death [Unknown]
  - Drug interaction [Unknown]
  - Placental infarction [Unknown]
